FAERS Safety Report 6707687-9 (Version None)
Quarter: 2010Q2

REPORT INFORMATION
  Report Type: 
  Country: None (occurrence: None)
  Receive Date: 20100503
  Receipt Date: 20090409
  Transmission Date: 20101027
  Serious: No
  Sender: FDA-Public Use
  Company Number: US-ASTRAZENECA-2009UW09041

PATIENT
  Age: 57 Year
  Sex: Female
  Weight: 83 kg

DRUGS (5)
  1. NEXIUM [Suspect]
     Indication: GASTROOESOPHAGEAL REFLUX DISEASE
     Route: 048
  2. AMBIEN CR [Concomitant]
     Indication: SLEEP DISORDER
  3. CLONAZEPAM [Concomitant]
     Indication: RESTLESS LEGS SYNDROME
  4. FLEXERIL [Concomitant]
     Indication: MUSCLE SPASMS
  5. LYRICA [Concomitant]
     Indication: FIBROMYALGIA

REACTIONS (1)
  - DYSPEPSIA [None]
